FAERS Safety Report 16882165 (Version 1)
Quarter: 2019Q4

REPORT INFORMATION
  Report Type: Spontaneous
  Country: JM (occurrence: JM)
  Receive Date: 20191003
  Receipt Date: 20191003
  Transmission Date: 20200122
  Serious: Yes (Death, Other)
  Sender: FDA-Public Use
  Company Number: JM-GLAXOSMITHKLINE-JM2019178618

PATIENT
  Age: 9 Year
  Sex: Female

DRUGS (1)
  1. CATAFLAM [Suspect]
     Active Substance: DICLOFENAC POTASSIUM
     Indication: EAR INFECTION
     Dosage: UNK
     Route: 065

REACTIONS (3)
  - Dengue fever [Unknown]
  - Death [Fatal]
  - Syncope [Unknown]
